FAERS Safety Report 9321479 (Version 4)
Quarter: 2013Q3

REPORT INFORMATION
  Report Type: Report from Study
  Country: DK (occurrence: DK)
  Receive Date: 20130531
  Receipt Date: 20130708
  Transmission Date: 20140515
  Serious: Yes (Other)
  Sender: FDA-Public Use
  Company Number: PHHY2013DK052160

PATIENT
  Sex: Female

DRUGS (16)
  1. VINORELBINE [Suspect]
     Indication: BREAST CANCER
  2. DOCETAXEL [Suspect]
     Indication: BREAST CANCER
  3. EPIRUBICIN [Suspect]
     Indication: BREAST CANCER
  4. GEMCITABINE [Suspect]
     Indication: BREAST CANCER
  5. FEMAR [Suspect]
     Indication: BREAST CANCER
     Route: 065
  6. XELODA [Suspect]
     Indication: BREAST CANCER
  7. TAXOL [Suspect]
     Indication: BREAST CANCER
  8. HERCEPTIN [Suspect]
     Indication: BREAST CANCER
     Route: 065
     Dates: start: 200512, end: 20130307
  9. HERCEPTIN [Suspect]
     Dates: start: 201012, end: 201012
  10. HERCEPTIN [Suspect]
     Dates: start: 201104
  11. HERCEPTIN [Suspect]
     Route: 065
     Dates: start: 20130429
  12. LAPATINIB [Suspect]
     Indication: BREAST CANCER
  13. ZOLADEX [Suspect]
     Indication: BREAST CANCER
  14. TAMOXIFEN [Concomitant]
  15. PANTOPRAZOLE [Concomitant]
     Dates: start: 20121221
  16. CONTALGIN [Concomitant]
     Dates: start: 20130605

REACTIONS (3)
  - Pericarditis [Not Recovered/Not Resolved]
  - Pleural effusion [Unknown]
  - Malignant neoplasm progression [Unknown]
